FAERS Safety Report 25816309 (Version 2)
Quarter: 2025Q3

REPORT INFORMATION
  Report Type: Report from Study
  Country: EU (occurrence: EU)
  Receive Date: 20250918
  Receipt Date: 20250926
  Transmission Date: 20251021
  Serious: Yes (Other)
  Sender: BIOGEN
  Company Number: EU-BIOGEN-2025BI01323680

PATIENT
  Sex: Male
  Weight: 65 kg

DRUGS (1)
  1. OMAVELOXOLONE [Suspect]
     Active Substance: OMAVELOXOLONE
     Indication: Friedreich^s ataxia
     Dosage: 150 MG ONCE DAILY (3 X 50 MG CAPSULES) SINGLE ADMINISTRATION
     Route: 050
     Dates: start: 20240708

REACTIONS (1)
  - Hepatic cytolysis [Unknown]
